FAERS Safety Report 7068864-3 (Version None)
Quarter: 2010Q4

REPORT INFORMATION
  Report Type: 
  Country: None (occurrence: None)
  Receive Date: 20101020
  Receipt Date: 20101006
  Transmission Date: 20110411
  Serious: Yes (Other)
  Sender: FDA-Public Use
  Company Number: LEO-2010-00920

PATIENT
  Age: 41 Year
  Sex: Female

DRUGS (1)
  1. INNOHEP [Suspect]
     Indication: VENOUS THROMBOSIS
     Dosage: 12000 IU (12000 IU, 1 IN 1 D,  SUBCUTANEOUS
     Route: 058
     Dates: start: 20100101, end: 20100101

REACTIONS (4)
  - ASTHENIA [None]
  - MALAISE [None]
  - MIGRAINE [None]
  - ON AND OFF PHENOMENON [None]
